FAERS Safety Report 4715598-3 (Version None)
Quarter: 2005Q3

REPORT INFORMATION
  Report Type: 
  Country: None (occurrence: None)
  Receive Date: 20050715
  Receipt Date: 20050715
  Transmission Date: 20060218
  Serious: Yes (Other)
  Sender: FDA-Public Use
  Company Number: None

PATIENT
  Sex: Female

DRUGS (1)
  1. CELEXA [Suspect]
     Dosage: 40 MG QDAY
     Dates: start: 20010101

REACTIONS (5)
  - AGITATION [None]
  - FATIGUE [None]
  - LIBIDO DECREASED [None]
  - MOOD ALTERED [None]
  - NERVOUSNESS [None]
